FAERS Safety Report 8990187 (Version 2)
Quarter: 2013Q1

REPORT INFORMATION
  Report Type: Report from Study
  Country: US (occurrence: US)
  Receive Date: 20121228
  Receipt Date: 20130206
  Transmission Date: 20140127
  Serious: Yes (Hospitalization)
  Sender: FDA-Public Use
  Company Number: US-ABBOTT-12P-163-1025532-00

PATIENT
  Age: 60 Year
  Sex: Female

DRUGS (20)
  1. HUMIRA [Suspect]
     Indication: PSORIASIS
     Dosage: BASELINE DOSE
     Route: 058
     Dates: start: 20100614
  2. HUMIRA [Suspect]
     Route: 058
  3. MULTIVITAMINS [Concomitant]
     Indication: ROUTINE HEALTH MAINTENANCE
     Dates: start: 2004
  4. CALCIUM [Concomitant]
     Indication: ROUTINE HEALTH MAINTENANCE
     Dates: start: 2004
  5. BIOTENE [Concomitant]
     Indication: ROUTINE HEALTH MAINTENANCE
     Dates: start: 2004
  6. FISH OIL [Concomitant]
     Indication: ROUTINE HEALTH MAINTENANCE
     Dates: start: 201007
  7. ULTRAVATE [Concomitant]
     Indication: PSORIASIS
     Dosage: BID FOR 3 WEEKS THEN 2 TIMES PER WEEK PRN
     Dates: start: 20101214
  8. TACLONEX [Concomitant]
     Indication: PSORIASIS
     Dates: start: 200611
  9. TACLONEX [Concomitant]
     Dosage: AT HS PRN
     Dates: start: 20100914
  10. OMEPRAZOLE [Concomitant]
     Indication: GASTROOESOPHAGEAL REFLUX DISEASE
     Dates: start: 201002
  11. METHOTREXATE [Concomitant]
     Indication: PSORIATIC ARTHROPATHY
     Dates: start: 201206, end: 201209
  12. METHOTREXATE [Concomitant]
     Dates: start: 201209, end: 201210
  13. METHOTREXATE [Concomitant]
     Dates: start: 20121031
  14. FOLIC ACID [Concomitant]
     Indication: FOLATE DEFICIENCY
     Dosage: Q DAY EXCEPT DAYS THAT SHE TAKES MTX
     Dates: start: 201201
  15. FOLIC ACID [Concomitant]
     Indication: PSORIATIC ARTHROPATHY
  16. CIPROFLOXACIN [Concomitant]
     Indication: DEHYDRATION
     Dates: start: 20121208, end: 20121218
  17. CIPROFLOXACIN [Concomitant]
     Indication: DIARRHOEA
  18. FLAGYL [Concomitant]
     Indication: DEHYDRATION
     Dates: start: 20121208, end: 20121218
  19. FLAGYL [Concomitant]
     Indication: DIARRHOEA
  20. CLOBEX [Concomitant]
     Indication: PSORIASIS
     Dosage: LOTION
     Dates: start: 2004

REACTIONS (2)
  - Gastroenteritis [Not Recovered/Not Resolved]
  - Dehydration [Not Recovered/Not Resolved]
